FAERS Safety Report 13815296 (Version 1)
Quarter: 2017Q3

REPORT INFORMATION
  Report Type: Spontaneous
  Country: US (occurrence: US)
  Receive Date: 20170729
  Receipt Date: 20170729
  Transmission Date: 20171127
  Serious: Yes (Life-Threatening, Disabling)
  Sender: FDA-Public Use
  Company Number: None

PATIENT
  Age: 61 Year
  Sex: Female
  Weight: 65.25 kg

DRUGS (2)
  1. KLONOPIN [Suspect]
     Active Substance: CLONAZEPAM
     Indication: ANXIETY
     Dosage: ?          QUANTITY:1 TABLET(S);OTHER FREQUENCY:FIVE TIMES DAILY;?
     Route: 048
     Dates: start: 19900219, end: 20060113
  2. ARMOUR THYROID [Concomitant]
     Active Substance: THYROID, PORCINE

REACTIONS (14)
  - Insomnia [None]
  - Palpitations [None]
  - Stress [None]
  - Derealisation [None]
  - Memory impairment [None]
  - Cognitive disorder [None]
  - Temperature intolerance [None]
  - Neurological symptom [None]
  - Myoclonus [None]
  - Unevaluable event [None]
  - Withdrawal syndrome [None]
  - Feeling of body temperature change [None]
  - Photophobia [None]
  - Depersonalisation/derealisation disorder [None]

NARRATIVE: CASE EVENT DATE: 20060113
